FAERS Safety Report 15313933 (Version 3)
Quarter: 2018Q4

REPORT INFORMATION
  Report Type: Spontaneous
  Country: US (occurrence: US)
  Receive Date: 20180824
  Receipt Date: 20181029
  Transmission Date: 20190204
  Serious: Yes (Other)
  Sender: FDA-Public Use
  Company Number: US-CIPLA LTD.-2018US20925

PATIENT

DRUGS (2)
  1. LAMOTRIGINE. [Suspect]
     Active Substance: LAMOTRIGINE
     Indication: BIPOLAR DISORDER
     Dosage: 1 DF (STRENGTH: 100 MG), QD
     Route: 048
     Dates: start: 20170130
  2. LAMOTRIGINE. [Suspect]
     Active Substance: LAMOTRIGINE
     Dosage: 2 DF (STRENGTH: 200 MG), QD, DOSE INCREASED
     Route: 048

REACTIONS (1)
  - Drug ineffective [Unknown]
